FAERS Safety Report 20611799 (Version 1)
Quarter: 2022Q1

REPORT INFORMATION
  Report Type: Spontaneous
  Country: PL (occurrence: PL)
  Receive Date: 20220318
  Receipt Date: 20220318
  Transmission Date: 20220423
  Serious: Yes (Other)
  Sender: FDA-Public Use
  Company Number: PL-BAUSCH-BL-2022-006347

PATIENT
  Age: 82 Year
  Sex: Female

DRUGS (2)
  1. IMIQUIMOD [Suspect]
     Active Substance: IMIQUIMOD
     Indication: Lentigo maligna
     Dosage: 1, 2 ND AND 3 RD COURSES; ONCE DAILY, 5 TIME PER WEEK (15 WEEKS OF TOTAL TREATMENT, 75 APPLICATIONS)
     Route: 061
  2. IMIQUIMOD [Suspect]
     Active Substance: IMIQUIMOD
     Indication: Off label use

REACTIONS (3)
  - Application site inflammation [Recovered/Resolved]
  - Application site ulcer [Recovered/Resolved]
  - Off label use [Unknown]
